FAERS Safety Report 7224548-X (Version None)
Quarter: 2011Q1

REPORT INFORMATION
  Report Type: 
  Country: None (occurrence: None)
  Receive Date: 20110106
  Receipt Date: 20110106
  Transmission Date: 20110831
  Serious: Yes (Hospitalization)
  Sender: FDA-Public Use
  Company Number: None

PATIENT
  Age: 92 Year
  Sex: Female
  Weight: 56.8 kg

DRUGS (8)
  1. COUMADIN [Suspect]
     Indication: THROMBOSIS PROPHYLAXIS
     Dosage: 5MG DAILY PO RECENT
     Route: 048
  2. AVISTA [Concomitant]
  3. ULTRAM [Concomitant]
  4. SENOKOT [Concomitant]
  5. AMLODIPINE [Concomitant]
  6. METRONIDAZOLE [Suspect]
     Dosage: 500MG MONDAYS PO
     Route: 048
  7. LOPRESSOR [Concomitant]
  8. TYLENOL-500 [Concomitant]

REACTIONS (2)
  - HAEMATURIA [None]
  - INTERNATIONAL NORMALISED RATIO INCREASED [None]
